FAERS Safety Report 4633111-6 (Version None)
Quarter: 2005Q2

REPORT INFORMATION
  Report Type: 
  Country: None (occurrence: None)
  Receive Date: 20050412
  Receipt Date: 20050406
  Transmission Date: 20051028
  Serious: Yes (Death, Life-Threatening, Other)
  Sender: FDA-Public Use
  Company Number: US-GLAXOSMITHKLINE-A0553021A

PATIENT
  Sex: Male

DRUGS (1)
  1. HYCAMTIN [Suspect]
     Dosage: 1.5MGM2 CYCLIC
     Route: 042

REACTIONS (2)
  - PANCYTOPENIA [None]
  - SEPTIC SHOCK [None]
